FAERS Safety Report 4404237-7 (Version None)
Quarter: 2004Q3

REPORT INFORMATION
  Report Type: 
  Country: None (occurrence: None)
  Receive Date: 20040720
  Receipt Date: 20040705
  Transmission Date: 20050211
  Serious: Yes (Death, Hospitalization)
  Sender: FDA-Public Use
  Company Number: BE-JNJFOC-20031006401

PATIENT
  Age: 24 Year
  Sex: Male

DRUGS (6)
  1. PROPULSID [Suspect]
     Indication: IMPAIRED GASTRIC EMPTYING
     Dosage: 20 MG, 4 IN 1 DAY, ORAL
     Route: 048
     Dates: start: 20030218, end: 20040624
  2. PROGRAF [Concomitant]
  3. MEDROL (NETHYLPREDNISOLONE) [Concomitant]
  4. TIENAM (TIENAM) [Concomitant]
  5. COLIMYCINE (COLISTIN MESILATE SODIUM) [Concomitant]
  6. PANCREATIC ENZYMES (PANCRELIPASE) [Concomitant]

REACTIONS (4)
  - LUNG ABSCESS [None]
  - LUNG TRANSPLANT REJECTION [None]
  - POSTOPERATIVE INFECTION [None]
  - RESPIRATORY FAILURE [None]
